FAERS Safety Report 13412747 (Version 1)
Quarter: 2017Q2

REPORT INFORMATION
  Report Type: Spontaneous
  Country: US (occurrence: US)
  Receive Date: 20170406
  Receipt Date: 20170406
  Transmission Date: 20170830
  Serious: Yes (Disabling, Other)
  Sender: FDA-Public Use
  Company Number: None

PATIENT
  Age: 42 Year
  Sex: Female
  Weight: 112.5 kg

DRUGS (2)
  1. COPAXONE [Suspect]
     Active Substance: GLATIRAMER ACETATE
     Indication: MULTIPLE SCLEROSIS
     Dosage: ?          QUANTITY:1 INJECTION(S);OTHER FREQUENCY:3 TIMES PER WEEK;?
     Route: 058
     Dates: start: 20160525
  2. VITAMIN D [Concomitant]
     Active Substance: CHOLECALCIFEROL

REACTIONS (9)
  - Pain in extremity [None]
  - Paraesthesia oral [None]
  - Dyspnoea [None]
  - Crying [None]
  - Body temperature increased [None]
  - Flushing [None]
  - Back pain [None]
  - Nausea [None]
  - Musculoskeletal pain [None]

NARRATIVE: CASE EVENT DATE: 20170405
